FAERS Safety Report 7093123-2 (Version None)
Quarter: 2010Q4

REPORT INFORMATION
  Report Type: 
  Country: None (occurrence: None)
  Receive Date: 20101110
  Receipt Date: 20101102
  Transmission Date: 20110411
  Serious: Yes (Disabling)
  Sender: FDA-Public Use
  Company Number: US-JNJFOC-20101101859

PATIENT

DRUGS (1)
  1. NUCYNTA [Suspect]
     Indication: PRODUCT USED FOR UNKNOWN INDICATION
     Route: 048

REACTIONS (2)
  - HEMIPLEGIA [None]
  - OVERDOSE [None]
